FAERS Safety Report 9625546 (Version 3)
Quarter: 2013Q4

REPORT INFORMATION
  Report Type: Report from Study
  Country: US (occurrence: US)
  Receive Date: 20131016
  Receipt Date: 20131024
  Transmission Date: 20140711
  Serious: Yes (Hospitalization)
  Sender: FDA-Public Use
  Company Number: PHHO2013US008366

PATIENT
  Age: 61 Year
  Sex: Female

DRUGS (1)
  1. SOM230 [Suspect]
     Indication: PANCREATIC CARCINOMA
     Dosage: 900 UG, BID
     Route: 058
     Dates: start: 20130617

REACTIONS (3)
  - Hyperglycaemia [Recovered/Resolved]
  - Cholecystitis [Recovered/Resolved]
  - Hypoglycaemia [Recovered/Resolved]
